FAERS Safety Report 10020324 (Version 1)
Quarter: 2014Q1

REPORT INFORMATION
  Report Type: Spontaneous
  Country: US (occurrence: US)
  Receive Date: 20140319
  Receipt Date: 20140319
  Transmission Date: 20141002
  Serious: No
  Sender: FDA-Public Use
  Company Number: US-BIOGENIDEC-2013BI090257

PATIENT
  Age: 60 Year
  Sex: Female

DRUGS (10)
  1. TECFIDERA [Suspect]
     Indication: MULTIPLE SCLEROSIS
     Route: 048
     Dates: start: 20130909
  2. TECFIDERA [Suspect]
     Indication: MULTIPLE SCLEROSIS
     Route: 048
     Dates: start: 201309
  3. KLONOPIN [Concomitant]
  4. SYNTHROID [Concomitant]
  5. GABAPENTIN [Concomitant]
  6. MELOXICAM [Concomitant]
  7. LEXAPRO [Concomitant]
  8. DRY EYES OINTMENT [Concomitant]
  9. BIOTIN [Concomitant]
  10. BIOTENE ORALBALANCE GEL [Concomitant]

REACTIONS (5)
  - Back pain [Unknown]
  - Stress [Unknown]
  - Depression [Unknown]
  - Dizziness [Unknown]
  - Flushing [Unknown]
